FAERS Safety Report 22092765 (Version 1)
Quarter: 2023Q1

REPORT INFORMATION
  Report Type: Spontaneous
  Country: US (occurrence: None)
  Receive Date: 20230313
  Receipt Date: 20230313
  Transmission Date: 20230418
  Serious: Yes (Disabling)
  Sender: FDA-Public Use
  Company Number: None

PATIENT
  Age: 73 Year
  Sex: Male
  Weight: 73.35 kg

DRUGS (13)
  1. KERENDIA [Suspect]
     Active Substance: FINERENONE
     Indication: Proteinuria
     Dosage: FREQUENCY : DAILY;?
     Route: 048
     Dates: start: 20230214, end: 20230302
  2. OMEPRAZOLE [Concomitant]
     Active Substance: OMEPRAZOLE
  3. LOSARTAN [Concomitant]
     Active Substance: LOSARTAN
  4. XARELTO [Concomitant]
     Active Substance: RIVAROXABAN
  5. FLOMAX [Concomitant]
     Active Substance: TAMSULOSIN HYDROCHLORIDE
  6. LIPITOR [Concomitant]
     Active Substance: ATORVASTATIN CALCIUM
  7. LASIX [Concomitant]
     Active Substance: FUROSEMIDE
  8. ZINC [Concomitant]
     Active Substance: ZINC
  9. VITAMIN D3 [Concomitant]
     Active Substance: CHOLECALCIFEROL
  10. MAGNESIUM [Concomitant]
     Active Substance: MAGNESIUM
  11. VITAMIN C [Concomitant]
     Active Substance: ASCORBIC ACID
  12. IRON [Concomitant]
     Active Substance: IRON
  13. TUMS [Concomitant]
     Active Substance: CALCIUM CARBONATE

REACTIONS (10)
  - Glomerulonephritis membranous [None]
  - Taste disorder [None]
  - Diarrhoea [None]
  - Fatigue [None]
  - Asthenia [None]
  - Therapy cessation [None]
  - Dysgeusia [None]
  - Weight decreased [None]
  - Ageusia [None]
  - Dysgeusia [None]

NARRATIVE: CASE EVENT DATE: 20230214
